FAERS Safety Report 25208027 (Version 1)
Quarter: 2025Q2

REPORT INFORMATION
  Report Type: Spontaneous
  Country: JP (occurrence: JP)
  Receive Date: 20250417
  Receipt Date: 20250417
  Transmission Date: 20250716
  Serious: Yes (Hospitalization)
  Sender: IPSEN
  Company Number: JP-IPSEN Group, Research and Development-2024-20053

PATIENT
  Age: 71 Year
  Sex: Male

DRUGS (1)
  1. TAZVERIK [Suspect]
     Active Substance: TAZEMETOSTAT HYDROBROMIDE
     Indication: Follicular lymphoma
     Dosage: 1600 MG (800 MG TWICE PER DAY)
     Route: 048
     Dates: start: 20230106

REACTIONS (12)
  - Urinary tract infection [Recovered/Resolved]
  - Pneumonia [Recovered/Resolved]
  - Muscle abscess [Unknown]
  - Pneumonia bacterial [Recovered/Resolved]
  - Faeces soft [Unknown]
  - Skin disorder [Recovering/Resolving]
  - Alopecia [Unknown]
  - COVID-19 [Recovered/Resolved]
  - Herpes zoster [Recovered/Resolved]
  - Taste disorder [Recovering/Resolving]
  - COVID-19 [Recovered/Resolved]
  - Cellulitis staphylococcal [Recovered/Resolved]

NARRATIVE: CASE EVENT DATE: 20240901
